FAERS Safety Report 4658266-9 (Version None)
Quarter: 2005Q2

REPORT INFORMATION
  Report Type: 
  Country: None (occurrence: None)
  Receive Date: 20050509
  Receipt Date: 20050509
  Transmission Date: 20051028
  Serious: No
  Sender: FDA-Public Use
  Company Number: None

PATIENT

DRUGS (2)
  1. MEGESTROL ACETATE [Suspect]
     Dosage: SUSPENSION
  2. MEGESTROL ACETATE [Suspect]
     Dosage: SUSPENSION

REACTIONS (3)
  - DRUG DISPENSING ERROR [None]
  - INTERCEPTED MEDICATION ERROR [None]
  - MEDICATION ERROR [None]
